FAERS Safety Report 21999587 (Version 1)
Quarter: 2023Q1

REPORT INFORMATION
  Report Type: Spontaneous
  Country: US (occurrence: US)
  Receive Date: 20230216
  Receipt Date: 20230216
  Transmission Date: 20230417
  Serious: Yes (Hospitalization, Other)
  Sender: FDA-Public Use
  Company Number: US-BRISTOL-MYERS SQUIBB COMPANY-2023-020277

PATIENT
  Age: 67 Year
  Sex: Male

DRUGS (2)
  1. ONUREG [Suspect]
     Active Substance: AZACITIDINE
     Indication: Acute myeloid leukaemia
     Dosage: PO D1-14 Q 28 DAY CYCLE
     Route: 048
     Dates: start: 202102
  2. ONUREG [Suspect]
     Active Substance: AZACITIDINE
     Dosage: PO D1-14 Q 28 DAY CYCLE
     Route: 048
     Dates: start: 202103

REACTIONS (2)
  - Cerebellar stroke [Unknown]
  - Malignant neoplasm progression [Unknown]

NARRATIVE: CASE EVENT DATE: 20210419
